FAERS Safety Report 10234653 (Version 2)
Quarter: 2014Q2

REPORT INFORMATION
  Report Type: Spontaneous
  Country: US (occurrence: US)
  Receive Date: 20140613
  Receipt Date: 20140624
  Transmission Date: 20141212
  Serious: Yes (Hospitalization)
  Sender: FDA-Public Use
  Company Number: US-BIOGENIDEC-2014BI053859

PATIENT
  Age: 15 Year
  Sex: Male

DRUGS (2)
  1. ALPROLIX [Suspect]
     Indication: FACTOR IX DEFICIENCY
  2. NOVOSEVEN RT [Concomitant]
     Indication: FACTOR IX DEFICIENCY

REACTIONS (1)
  - No adverse event [Unknown]
